FAERS Safety Report 21615594 (Version 1)
Quarter: 2022Q4

REPORT INFORMATION
  Report Type: Spontaneous
  Country: US (occurrence: None)
  Receive Date: 20221117
  Receipt Date: 20221117
  Transmission Date: 20230113
  Serious: Yes (Hospitalization)
  Sender: FDA-Public Use
  Company Number: None

PATIENT
  Age: 85 Year
  Sex: Female
  Weight: 59.33 kg

DRUGS (9)
  1. TIBSOVO [Suspect]
     Active Substance: IVOSIDENIB
     Indication: Myelodysplastic syndrome
     Dosage: FREQUENCY : DAILY;?
     Route: 048
  2. ASPIRIN [Concomitant]
  3. AMLODIPINE [Concomitant]
  4. ATORVASTATIN [Concomitant]
  5. HYDROCHLOROTHIAZINE [Concomitant]
  6. HYDROXYUREA [Concomitant]
  7. LEVOTHYROXINE [Concomitant]
  8. METOPROLOL [Concomitant]
  9. PANTOPRAZOLE [Concomitant]

REACTIONS (2)
  - Localised infection [None]
  - Pneumonia [None]
